FAERS Safety Report 8245944 (Version 4)
Quarter: 2013Q1

REPORT INFORMATION
  Report Type: Report from Study
  Country: DE (occurrence: DE)
  Receive Date: 20111115
  Receipt Date: 20130206
  Transmission Date: 20140127
  Serious: Yes (Hospitalization)
  Sender: FDA-Public Use
  Company Number: CH-BRISTOL-MYERS SQUIBB COMPANY-16229726

PATIENT
  Age: 68 Year
  Sex: Male

DRUGS (3)
  1. CETUXIMAB [Suspect]
     Indication: OESOPHAGEAL CARCINOMA
     Dosage: 13JAN11-17FEB11,28FEB11-28MAR11;500MG,1000MG 1 IN 2 WK;13JUL11-21SEP11. PRIOR TO EVENT: 21SEP11
     Route: 042
     Dates: start: 20110113, end: 20110921
  2. CISPLATIN FOR INJ [Suspect]
     Indication: OESOPHAGEAL CARCINOMA
     Dosage: 13JAN11-17FEB11,28FEB11-28MAR11;50MG,PRIOR TO EVENT: 28MAR11
     Route: 042
     Dates: start: 20110113, end: 20110328
  3. DOCETAXEL [Suspect]
     Indication: OESOPHAGEAL CARCINOMA
     Dosage: 13JAN11-17FEB11,28FEB11-28MAR11;40MG,PRIOR TO EVENT:28MAR11.
     Route: 042
     Dates: start: 20110113, end: 20110328

REACTIONS (3)
  - Endophthalmitis [Recovered/Resolved with Sequelae]
  - Retinal detachment [Recovered/Resolved with Sequelae]
  - Keratitis [Recovered/Resolved with Sequelae]
